FAERS Safety Report 4319911-0 (Version None)
Quarter: 2004Q1

REPORT INFORMATION
  Report Type: 
  Country: None (occurrence: None)
  Receive Date: 20040316
  Receipt Date: 20040308
  Transmission Date: 20041129
  Serious: Yes (Life-Threatening, Hospitalization)
  Sender: FDA-Public Use
  Company Number: 2004UW01599

PATIENT
  Age: 44 Year
  Sex: Male

DRUGS (9)
  1. SEROQUEL [Suspect]
     Indication: PSYCHOTIC DISORDER
     Dosage: 25 MG DAILY PO
     Route: 048
  2. SEROQUEL [Suspect]
     Indication: PSYCHOTIC DISORDER
     Dosage: 50 MG DAILY PO
     Route: 048
  3. SEROQUEL [Suspect]
     Indication: PSYCHOTIC DISORDER
     Dosage: 100 MG DAILY PO
     Route: 048
  4. HALDOL [Suspect]
     Dosage: 1 MG ONCE IM
     Route: 030
  5. BENZODIAZEPINE [Suspect]
  6. MELLARIL [Concomitant]
  7. TRILAFON [Concomitant]
  8. TRIAVIL [Concomitant]
  9. XANAX [Concomitant]

REACTIONS (13)
  - AGITATION [None]
  - BLOOD CREATINE PHOSPHOKINASE INCREASED [None]
  - CONFUSIONAL STATE [None]
  - DEHYDRATION [None]
  - DRUG WITHDRAWAL SYNDROME [None]
  - DYSPNOEA [None]
  - HYPOTENSION [None]
  - MUSCLE RIGIDITY [None]
  - NEUROLEPTIC MALIGNANT SYNDROME [None]
  - RENAL FAILURE [None]
  - RESTLESSNESS [None]
  - SEPSIS [None]
  - TEMPERATURE REGULATION DISORDER [None]
